FAERS Safety Report 23987188 (Version 3)
Quarter: 2024Q4

REPORT INFORMATION
  Report Type: Spontaneous
  Country: US (occurrence: US)
  Receive Date: 20240618
  Receipt Date: 20241210
  Transmission Date: 20250115
  Serious: No
  Sender: MARINUS PHARMACEUTICALS
  Company Number: US-MARINUS PHARMACEUTICALS, INC.-MAR2024000094

PATIENT

DRUGS (21)
  1. ZTALMY [Suspect]
     Active Substance: GANAXOLONE
     Indication: CDKL5 deficiency disorder
     Dosage: 12 MILLILITER, TID SUSPENSION
     Route: 048
     Dates: start: 202210
  2. AMOXICILLIN [Concomitant]
     Active Substance: AMOXICILLIN
     Indication: Product used for unknown indication
     Dosage: 10 MILLILITER, BID
  3. BOOST BREEZE [Concomitant]
     Indication: Product used for unknown indication
     Dosage: 237 MILLILITER (0.004 GRAM-1.05 KCAL/ML)
     Route: 048
     Dates: start: 20240827
  4. DIETARY SUPPLEMENT [Concomitant]
     Active Substance: DIETARY SUPPLEMENT
     Indication: Product used for unknown indication
     Dosage: 2 CARTONS OF BOOST VHC/DAY
     Route: 048
     Dates: start: 20231130
  5. CLONIDINE HYDROCHLORIDE [Concomitant]
     Active Substance: CLONIDINE HYDROCHLORIDE
     Indication: Product used for unknown indication
     Dosage: 2 TABLETS AT BEDTIME
     Route: 048
     Dates: start: 20240905
  6. DIAZEPAM [Concomitant]
     Active Substance: DIAZEPAM
     Indication: Seizure
     Dosage: 7.5 MILLIGRAM, PRN
     Route: 054
  7. DIAZEPAM [Concomitant]
     Active Substance: DIAZEPAM
     Dosage: 7.5 MILLIGRAM, PRN
     Route: 054
  8. DIAZEPAM [Concomitant]
     Active Substance: DIAZEPAM
     Dosage: 10 MILLIGRAM, PRN
     Route: 054
  9. DIAZEPAM [Concomitant]
     Active Substance: DIAZEPAM
     Dosage: 1.5 MILLILITER, TID (5MG/5ML (1MG/ML))
     Route: 048
  10. DIGESTIVE PROBIOTICS ADVANCED [Concomitant]
     Indication: Product used for unknown indication
     Dosage: 1 DOSAGE FORM, QD
     Route: 048
  11. ERYTHROMYCIN ETHYLSUCCINATE [Concomitant]
     Active Substance: ERYTHROMYCIN ETHYLSUCCINATE
     Indication: Product used for unknown indication
     Dosage: 2 MILLILITER, TID (200MG/5ML ORAL POWDER FOR SUSPENSION)
     Route: 048
  12. ESOMEPRAZOLE MAGNESIUM [Concomitant]
     Active Substance: ESOMEPRAZOLE MAGNESIUM
     Indication: Product used for unknown indication
     Dosage: 20 MILLIGRAM, BID DELAYED RELEASE TABLET
     Route: 048
  13. LAMOTRIGINE [Concomitant]
     Active Substance: LAMOTRIGINE
     Indication: Product used for unknown indication
     Dosage: 200 MILLIGRAM, BID
     Route: 048
  14. LOESTRIN 1.5/30-21 [Concomitant]
     Indication: Product used for unknown indication
     Dosage: 1.5MG-30MCG TABLET(TAKE 1 A DAY)
     Route: 048
  15. LOW-OGESTREL-28 [Concomitant]
     Indication: Product used for unknown indication
     Dosage: 0.3MG-30MCG TABLET
     Route: 048
     Dates: start: 20240905
  16. NAYZILAM [Concomitant]
     Active Substance: MIDAZOLAM
     Indication: Seizure
     Dosage: 1 DOSAGE FORM, PRN( ONE SPRAY IN NOSTRIL)
     Route: 045
  17. NEXIUM I.V. [Concomitant]
     Active Substance: ESOMEPRAZOLE SODIUM
     Indication: Product used for unknown indication
     Dosage: 20 MILLIGRAM, TID (GRANULES DELAYED RELEASE, 1 PACKET)
     Route: 048
  18. ONDANSETRON HYDROCHLORIDE [Concomitant]
     Active Substance: ONDANSETRON HYDROCHLORIDE
     Indication: Product used for unknown indication
     Dosage: 5 MILLILITER,Q8H PRN  EVERY 8 HOURS (4MG/5ML ORAL SOLUTION)
     Route: 048
  19. UNSPECIFIED INGREDIENT [Concomitant]
     Active Substance: UNSPECIFIED INGREDIENT
     Indication: Product used for unknown indication
     Dosage: 0.05 GRAM-1.5 KCAL/ML
     Route: 048
     Dates: start: 20231130
  20. RUFINAMIDE [Concomitant]
     Active Substance: RUFINAMIDE
     Indication: Product used for unknown indication
     Dosage: 11 MILLILITER, BID (40MG/ML SUSPENSION)
     Route: 048
  21. SENNA LIQUID [Concomitant]
     Active Substance: SENNOSIDES
     Indication: Product used for unknown indication
     Dosage: 5 MILLILITER EVERY DAY AT BEDTIME  (8.8 MG/5ML)
     Route: 048

REACTIONS (1)
  - Lethargy [Unknown]

NARRATIVE: CASE EVENT DATE: 20240101
